FAERS Safety Report 9886139 (Version 1)
Quarter: 2014Q1

REPORT INFORMATION
  Report Type: Spontaneous
  Country: CZ (occurrence: CZ)
  Receive Date: 20140210
  Receipt Date: 20140210
  Transmission Date: 20141002
  Serious: Yes (Hospitalization)
  Sender: FDA-Public Use
  Company Number: CZ-PFIZER INC-2014034752

PATIENT
  Age: 71 Year
  Sex: Male

DRUGS (3)
  1. AMIODARONE HCL [Suspect]
     Indication: ATRIAL FIBRILLATION
     Dosage: UNK
     Route: 065
  2. WARFARIN [Concomitant]
     Dosage: UNK
  3. PARACETAMOL [Concomitant]
     Indication: PYREXIA
     Dosage: UNK

REACTIONS (14)
  - Myalgia [Not Recovered/Not Resolved]
  - Arthralgia [Not Recovered/Not Resolved]
  - Dyspnoea [Not Recovered/Not Resolved]
  - Fatigue [Unknown]
  - Pulmonary fibrosis [Unknown]
  - Hepatic lesion [Unknown]
  - Anaemia [Unknown]
  - Myopathy [Not Recovered/Not Resolved]
  - Depression [Not Recovered/Not Resolved]
  - Tri-iodothyronine decreased [Unknown]
  - Oedema peripheral [Unknown]
  - Dermatitis [Unknown]
  - Hypoproteinaemia [Unknown]
  - Neuropathy peripheral [Unknown]
